FAERS Safety Report 25232775 (Version 2)
Quarter: 2025Q2

REPORT INFORMATION
  Report Type: Spontaneous
  Country: US (occurrence: US)
  Receive Date: 20250424
  Receipt Date: 20250502
  Transmission Date: 20250717
  Serious: Yes (Hospitalization)
  Sender: TEVA
  Company Number: US-TEVA-VS-3323037

PATIENT
  Age: 6 Month
  Sex: Male
  Weight: 8.9 kg

DRUGS (1)
  1. PROPOFOL [Suspect]
     Active Substance: PROPOFOL
     Indication: Sedative therapy
     Dosage: APPROXIMATELY 13?HOURS
     Route: 050

REACTIONS (7)
  - Propofol infusion syndrome [Unknown]
  - Ventricular tachycardia [Unknown]
  - Bradycardia [Unknown]
  - Lactic acidosis [Unknown]
  - Status epilepticus [Recovering/Resolving]
  - Cerebral haemorrhage [Unknown]
  - Partial seizures [Recovering/Resolving]
